FAERS Safety Report 21708363 (Version 2)
Quarter: 2024Q1

REPORT INFORMATION
  Report Type: Spontaneous
  Country: US (occurrence: US)
  Receive Date: 20221210
  Receipt Date: 20240217
  Transmission Date: 20240410
  Serious: No
  Sender: FDA-Public Use
  Company Number: US-DSJP-DSU-2022-143845AA

PATIENT
  Sex: Male

DRUGS (1)
  1. PEXIDARTINIB [Suspect]
     Active Substance: PEXIDARTINIB
     Indication: Giant cell tumour of tendon sheath
     Dosage: 400 MG, BID
     Route: 048

REACTIONS (5)
  - Hypertransaminasaemia [Unknown]
  - Lymphopenia [Unknown]
  - Hair colour changes [Unknown]
  - Dysgeusia [Unknown]
  - Leukopenia [Unknown]
